FAERS Safety Report 10419332 (Version 1)
Quarter: 2014Q2

REPORT INFORMATION
  Report Type: Spontaneous
  Country: US (occurrence: None)
  Receive Date: 20140627
  Receipt Date: 20140627
  Transmission Date: 20141212
  Serious: Yes (Other)
  Sender: FDA-Public Use
  Company Number: PHEH2013US016775

PATIENT
  Age: 47 Year
  Sex: Female
  Weight: 100.7 kg

DRUGS (4)
  1. DIOVAN HCT (VALSARTAN, HYDROCHLOROTHIAZIDE) UNKNOWN [Suspect]
     Indication: HYPERTENSION
     Dosage: VALS
  2. LISINOPRIL (LISINOPRIL) [Concomitant]
  3. METFORMIN (METFORMIN) [Suspect]
  4. NOVOLIN [Suspect]

REACTIONS (1)
  - Blood pressure increased [None]
